FAERS Safety Report 8155640-3 (Version None)
Quarter: 2012Q1

REPORT INFORMATION
  Report Type: 
  Country: None (occurrence: None)
  Receive Date: 20120222
  Receipt Date: 20120220
  Transmission Date: 20120608
  Serious: No
  Sender: FDA-Public Use
  Company Number: US-PFIZER INC-2012044890

PATIENT
  Sex: Female
  Weight: 57 kg

DRUGS (7)
  1. CHANTIX [Suspect]
     Indication: SMOKING CESSATION THERAPY
     Dosage: 0.5 MG, 1X/DAY
     Route: 048
     Dates: start: 20120124, end: 20120101
  2. FLUOXETINE [Concomitant]
     Dosage: 40 MG, UNK
  3. ACETAMINOPHEN AND HYDROCODONE BITARTRATE [Concomitant]
     Dosage: 10/325 MG, UNK
  4. GABAPENTIN [Concomitant]
     Indication: PAIN
     Dosage: UNK
  5. ATENOLOL [Concomitant]
     Dosage: 25 MG, 1X/DAY
  6. CHANTIX [Suspect]
     Dosage: 1 MG, 2X/DAY
     Route: 048
     Dates: start: 20120101
  7. LISINOPRIL [Concomitant]
     Dosage: UNK

REACTIONS (3)
  - FEELING ABNORMAL [None]
  - IRRITABILITY [None]
  - AGITATION [None]
